FAERS Safety Report 13000310 (Version 1)
Quarter: 2016Q4

REPORT INFORMATION
  Report Type: Report from Study
  Country: US (occurrence: US)
  Receive Date: 20161206
  Receipt Date: 20161206
  Transmission Date: 20170207
  Serious: No
  Sender: FDA-Public Use
  Company Number: US-AMGEN-USASL2016164014

PATIENT
  Age: 22 Year
  Sex: Female

DRUGS (1)
  1. ENBREL [Suspect]
     Active Substance: ETANERCEPT
     Indication: SKIN PLAQUE
     Dosage: 50 MG, UNK
     Route: 065

REACTIONS (3)
  - Injection site erythema [Unknown]
  - Off label use [Unknown]
  - Injection site bruising [Unknown]
